FAERS Safety Report 8136102-6 (Version None)
Quarter: 2012Q1

REPORT INFORMATION
  Report Type: 
  Country: None (occurrence: None)
  Receive Date: 20120214
  Receipt Date: 20111221
  Transmission Date: 20120608
  Serious: No
  Sender: FDA-Public Use
  Company Number: US-COVIDIEN/TYCO HEALTHCARE/MALLINCKRODT-T201102960

PATIENT
  Sex: Female
  Weight: 58.957 kg

DRUGS (5)
  1. FENTANYL-100 [Suspect]
     Indication: PROCTALGIA
     Dosage: 25 UG/HR, 1 FTS EVERY 3 DAYS
     Route: 062
     Dates: start: 20111204, end: 20111221
  2. SYNTHROID [Concomitant]
     Indication: HYPOTHYROIDISM
     Dosage: UNK
     Route: 048
  3. PEPCID [Concomitant]
     Indication: GASTROOESOPHAGEAL REFLUX DISEASE
     Dosage: UNK
     Route: 048
  4. VITAMINS                           /90003601/ [Concomitant]
     Dosage: UNK
     Route: 048
  5. LYRICA [Concomitant]
     Indication: FIBROMYALGIA
     Dosage: UNK
     Route: 048

REACTIONS (4)
  - TONGUE DISORDER [None]
  - PALPITATIONS [None]
  - PAROSMIA [None]
  - TREMOR [None]
